FAERS Safety Report 14122552 (Version 1)
Quarter: 2017Q4

REPORT INFORMATION
  Report Type: Spontaneous
  Country: US (occurrence: US)
  Receive Date: 20171024
  Receipt Date: 20171024
  Transmission Date: 20180321
  Serious: Yes (Other)
  Sender: FDA-Public Use
  Company Number: US-MALLINCKRODT-T201704247

PATIENT
  Sex: Female
  Weight: 122 kg

DRUGS (1)
  1. H.P. ACTHAR [Suspect]
     Active Substance: CORTICOTROPIN
     Indication: OSTEOPOROSIS
     Dosage: 80 UNITS/ML, 80 UNITS TWICE WEEKLY
     Route: 058

REACTIONS (8)
  - Infection [Unknown]
  - Fluid retention [Unknown]
  - Blood pressure increased [Unknown]
  - Hemiparesis [Unknown]
  - Swelling [Unknown]
  - Blood glucose fluctuation [Unknown]
  - Off label use [Unknown]
  - Dysarthria [Unknown]
